FAERS Safety Report 11118923 (Version 1)
Quarter: 2015Q2

REPORT INFORMATION
  Report Type: Spontaneous
  Country: US (occurrence: None)
  Receive Date: 20150515
  Receipt Date: 20150515
  Transmission Date: 20150821
  Serious: Yes (Disabling)
  Sender: FDA-Public Use
  Company Number: None

PATIENT
  Age: 13 Year
  Sex: Female
  Weight: 58.06 kg

DRUGS (1)
  1. OMEPRAZOLE 20MG [Suspect]
     Active Substance: OMEPRAZOLE
     Indication: GASTROOESOPHAGEAL REFLUX DISEASE
     Dosage: 20 MG/DAY (ONE PILL) ONCE DAILY TAKEN BY MOUTH
     Route: 048

REACTIONS (7)
  - Suicidal ideation [None]
  - Gastrooesophageal reflux disease [None]
  - Condition aggravated [None]
  - Sleep disorder [None]
  - Dizziness [None]
  - Pain [None]
  - Nausea [None]

NARRATIVE: CASE EVENT DATE: 20150421
